FAERS Safety Report 5141396-5 (Version None)
Quarter: 2006Q4

REPORT INFORMATION
  Report Type: 
  Country: None (occurrence: None)
  Receive Date: 20061101
  Receipt Date: 20061025
  Transmission Date: 20070319
  Serious: Yes (Life-Threatening, Hospitalization)
  Sender: FDA-Public Use
  Company Number: FR-GLAXOSMITHKLINE-B0443876A

PATIENT
  Age: 48 Year
  Sex: Female

DRUGS (6)
  1. LAMICTAL [Suspect]
     Indication: EPILEPSY
     Route: 048
  2. EPITOMAX [Suspect]
     Indication: EPILEPSY
     Route: 048
  3. DENSICAL [Concomitant]
     Route: 065
     Dates: end: 20060911
  4. GARDENAL [Concomitant]
     Dosage: 100MG PER DAY
     Route: 048
  5. NOROXIN [Concomitant]
     Route: 065
     Dates: end: 20060911
  6. FOSPHENYTOIN SODIUM [Concomitant]
     Route: 065

REACTIONS (7)
  - ABDOMINAL PAIN [None]
  - ANAEMIA HAEMOLYTIC AUTOIMMUNE [None]
  - ANISOCYTOSIS [None]
  - BLOOD BILIRUBIN INCREASED [None]
  - HYPOCHROMASIA [None]
  - MACROCYTOSIS [None]
  - STATUS EPILEPTICUS [None]
